FAERS Safety Report 22654139 (Version 1)
Quarter: 2023Q2

REPORT INFORMATION
  Report Type: Spontaneous
  Country: US (occurrence: None)
  Receive Date: 20230628
  Receipt Date: 20230628
  Transmission Date: 20230722
  Serious: Yes (Hospitalization)
  Sender: FDA-Public Use
  Company Number: None

PATIENT
  Age: 60 Year
  Sex: Female

DRUGS (1)
  1. ENBREL [Suspect]
     Active Substance: ETANERCEPT
     Indication: Psoriatic arthropathy
     Dosage: OTHER FREQUENCY : OTHER;?
     Route: 058
     Dates: start: 202011

REACTIONS (3)
  - Dialysis [None]
  - Blood pressure increased [None]
  - Cerebrovascular accident [None]

NARRATIVE: CASE EVENT DATE: 20230621
